FAERS Safety Report 9623314 (Version 1)
Quarter: 2013Q4

REPORT INFORMATION
  Report Type: Spontaneous
  Country: GB (occurrence: GB)
  Receive Date: 20131015
  Receipt Date: 20131015
  Transmission Date: 20140711
  Serious: Yes (Other)
  Sender: FDA-Public Use
  Company Number: PHHY2013GB111069

PATIENT
  Age: 27 Year
  Sex: Female
  Weight: 116.56 kg

DRUGS (2)
  1. PROPRANOLOL [Suspect]
     Indication: ANXIETY
     Dosage: 1 DF, TID
     Route: 048
     Dates: start: 20130920
  2. SERTRALINE [Concomitant]

REACTIONS (3)
  - Hyperhidrosis [Not Recovered/Not Resolved]
  - Body temperature increased [Not Recovered/Not Resolved]
  - Erythema [Not Recovered/Not Resolved]
